FAERS Safety Report 5986370-1 (Version None)
Quarter: 2008Q4

REPORT INFORMATION
  Report Type: 
  Country: None (occurrence: None)
  Receive Date: 20081209
  Receipt Date: 20080407
  Transmission Date: 20090506
  Serious: No
  Sender: FDA-Public Use
  Company Number: US-AMGEN-KDL273378

PATIENT
  Sex: Female

DRUGS (2)
  1. ENBREL [Suspect]
     Indication: PSORIASIS
     Route: 058
     Dates: start: 20080117
  2. ENBREL [Suspect]
     Indication: PUSTULAR PSORIASIS

REACTIONS (6)
  - INFLUENZA LIKE ILLNESS [None]
  - INJECTION SITE HAEMATOMA [None]
  - INJECTION SITE IRRITATION [None]
  - INJECTION SITE PAIN [None]
  - RHINORRHOEA [None]
  - THERAPEUTIC RESPONSE DELAYED [None]
